FAERS Safety Report 21762997 (Version 1)
Quarter: 2022Q4

REPORT INFORMATION
  Report Type: Spontaneous
  Country: US (occurrence: US)
  Receive Date: 20221221
  Receipt Date: 20221221
  Transmission Date: 20230113
  Serious: Yes (Other)
  Sender: FDA-Public Use
  Company Number: US-AMERICAN REGENT INC-2022003601

PATIENT
  Sex: Female
  Weight: 77.868 kg

DRUGS (43)
  1. VENOFER [Suspect]
     Active Substance: IRON SUCROSE
     Indication: Iron deficiency anaemia
     Dosage: 200 MILLIGRAM IN 100 ML OF NORMAL SALINE
     Route: 042
     Dates: start: 20100524, end: 20100524
  2. VENOFER [Suspect]
     Active Substance: IRON SUCROSE
     Dosage: 200 MILLIGRAM IN 100 ML OF NORMAL SALINE
     Route: 042
     Dates: start: 20100531, end: 20100531
  3. VENOFER [Suspect]
     Active Substance: IRON SUCROSE
     Dosage: 200 MILLIGRAM IN 100 ML OF NORMAL SALINE
     Route: 042
     Dates: start: 20101025, end: 20101025
  4. VENOFER [Suspect]
     Active Substance: IRON SUCROSE
     Dosage: 200 MILLIGRAM IN 100 ML OF NORMAL SALINE
     Route: 042
     Dates: start: 20101101, end: 20101101
  5. VENOFER [Suspect]
     Active Substance: IRON SUCROSE
     Dosage: 200 MILLIGRAM IN 100 ML OF NORMAL SALINE
     Route: 042
     Dates: start: 20101108, end: 20101108
  6. VENOFER [Suspect]
     Active Substance: IRON SUCROSE
     Dosage: 200 MILLIGRAM IN 100 ML OF NORMAL SALINE
     Route: 042
     Dates: start: 20101115, end: 20101115
  7. VENOFER [Suspect]
     Active Substance: IRON SUCROSE
     Dosage: 200 MILLIGRAM IN 100 ML OF NORMAL SALINE
     Route: 042
     Dates: start: 20101122, end: 20101122
  8. VENOFER [Suspect]
     Active Substance: IRON SUCROSE
     Dosage: 01SEP2020 200 MILLIGRAM IN 250 ML OF NORMAL SALINE
     Dates: start: 20200901, end: 20200901
  9. VENOFER [Suspect]
     Active Substance: IRON SUCROSE
     Dosage: 08SEP2020 200 MILLIGRAM IN 250 ML OF NORMAL SALINE
     Dates: start: 20200908, end: 20200908
  10. VENOFER [Suspect]
     Active Substance: IRON SUCROSE
     Dosage: 22SEP2020 200 MILLIGRAM IN 250 ML OF NORMAL SALINE
     Dates: start: 20200922, end: 20200922
  11. VENOFER [Suspect]
     Active Substance: IRON SUCROSE
     Dosage: 29SEP2020 200 MILLIGRAM IN 250 ML OF NORMAL SALINE
     Dates: start: 20200929, end: 20200929
  12. VENOFER [Suspect]
     Active Substance: IRON SUCROSE
     Dosage: 06OCT2020 200 MILLIGRAM IN 250 ML OF NORMAL SALINE
     Dates: start: 20201006, end: 20201006
  13. VENOFER [Suspect]
     Active Substance: IRON SUCROSE
     Dosage: 13OCT2020 200 MILLIGRAM IN 250 ML OF NORMAL SALINE
     Dates: start: 20201013, end: 20201013
  14. VENOFER [Suspect]
     Active Substance: IRON SUCROSE
     Dosage: 20OCT2020 200 MILLIGRAM IN 250 ML OF NORMAL SALINE
     Dates: start: 20201020, end: 20201020
  15. VENOFER [Suspect]
     Active Substance: IRON SUCROSE
     Dosage: 26FEB21 200 MILLIGRAM IN 250 ML OF NORMAL SALINE
     Dates: start: 20210226, end: 20210226
  16. VENOFER [Suspect]
     Active Substance: IRON SUCROSE
     Dosage: 05MAR21 200 MILLIGRAM IN 250 ML OF NORMAL SALINE
     Dates: start: 20210305, end: 20210305
  17. VENOFER [Suspect]
     Active Substance: IRON SUCROSE
     Dosage: 12MAR21 200 MILLIGRAM IN 250 ML OF NORMAL SALINE
     Dates: start: 20210312, end: 20210312
  18. VENOFER [Suspect]
     Active Substance: IRON SUCROSE
     Dosage: 19MAR21 200 MILLIGRAM IN 250 ML OF NORMAL SALINE
     Dates: start: 20210319, end: 20210319
  19. VENOFER [Suspect]
     Active Substance: IRON SUCROSE
     Dosage: 26MAR21 200 MILLIGRAM IN 250 ML OF NORMAL SALINE
     Dates: start: 20210326, end: 20210326
  20. VENOFER [Suspect]
     Active Substance: IRON SUCROSE
     Dosage: 25APR22 100 MILLIGRAM IN 100 ML OF NORMAL SALINE
     Dates: start: 20220425, end: 20220425
  21. VENOFER [Suspect]
     Active Substance: IRON SUCROSE
     Dosage: 02MAY22 100 MILLIGRAM IN 100 ML OF NORMAL SALINE
     Dates: start: 20220502, end: 20220502
  22. VENOFER [Suspect]
     Active Substance: IRON SUCROSE
     Dosage: 09MAY22 100 MILLIGRAM IN 100 ML OF NORMAL SALINE
     Dates: start: 20220509, end: 20220509
  23. VENOFER [Suspect]
     Active Substance: IRON SUCROSE
     Dosage: 16MAY22100 MILLIGRAM IN 100 ML OF NORMAL SALINE
     Dates: start: 20220516, end: 20220516
  24. VENOFER [Suspect]
     Active Substance: IRON SUCROSE
     Dosage: 23MAY22 100 MILLIGRAM IN 100 ML OF NORMAL SALINE
     Dates: start: 20220523, end: 20220523
  25. VENOFER [Suspect]
     Active Substance: IRON SUCROSE
     Dosage: 30MAY22 100 MILLIGRAM IN 100 ML OF NORMAL SALINE
     Dates: start: 20220530, end: 20220530
  26. VENOFER [Suspect]
     Active Substance: IRON SUCROSE
     Dosage: 06JUN22 100 MILLIGRAM IN 100ML OF NORMAL SALINE
     Dates: start: 20220606, end: 20220606
  27. HYDROCORTISONE [Concomitant]
     Active Substance: HYDROCORTISONE
     Indication: Premedication
     Dosage: 100 MILLIGRAM, SINGLE
     Route: 042
     Dates: start: 20100524, end: 20100524
  28. HYDROCORTISONE [Concomitant]
     Active Substance: HYDROCORTISONE
     Dosage: 100 MILLIGRAM, SINGLE
     Route: 042
     Dates: start: 20100531, end: 20100531
  29. HYDROCORTISONE [Concomitant]
     Active Substance: HYDROCORTISONE
     Dosage: 100 MILLIGRAM, SINGLE
     Route: 042
     Dates: start: 20101025, end: 20101025
  30. HYDROCORTISONE [Concomitant]
     Active Substance: HYDROCORTISONE
     Dosage: 100 MILLIGRAM, SINGLE
     Route: 042
     Dates: start: 20101108, end: 20101108
  31. HYDROCORTISONE [Concomitant]
     Active Substance: HYDROCORTISONE
     Dosage: 100 MILLIGRAM, SINGLE
     Route: 042
     Dates: start: 20101115, end: 20101115
  32. HYDROCORTISONE [Concomitant]
     Active Substance: HYDROCORTISONE
     Dosage: 100 MILLIGRAM, SINGLE
     Route: 042
     Dates: start: 20101122, end: 20101122
  33. BENADRYL [Concomitant]
     Active Substance: DIPHENHYDRAMINE HYDROCHLORIDE
     Indication: Premedication
     Dosage: 50 MILLIGRAM, SINGLE
     Route: 042
     Dates: start: 20100524, end: 20100524
  34. BENADRYL [Concomitant]
     Active Substance: DIPHENHYDRAMINE HYDROCHLORIDE
     Dosage: 50 MILLIGRAM, SINGLE
     Route: 042
     Dates: start: 20101025, end: 20101025
  35. BENADRYL [Concomitant]
     Active Substance: DIPHENHYDRAMINE HYDROCHLORIDE
     Dosage: 50 MILLIGRAM, SINGLE
     Route: 042
     Dates: start: 20101025, end: 20101025
  36. BENADRYL [Concomitant]
     Active Substance: DIPHENHYDRAMINE HYDROCHLORIDE
     Dosage: 50 MILLIGRAM, SINGLE
     Route: 042
     Dates: start: 20101108, end: 20101108
  37. BENADRYL [Concomitant]
     Active Substance: DIPHENHYDRAMINE HYDROCHLORIDE
     Dosage: 50 MILLIGRAM, SINGLE
     Route: 042
     Dates: start: 20101115, end: 20101115
  38. BENADRYL [Concomitant]
     Active Substance: DIPHENHYDRAMINE HYDROCHLORIDE
     Dosage: 50 MILLIGRAM, SINGLE
     Route: 042
     Dates: start: 20101122, end: 20101122
  39. ACETAMINOPHEN [Concomitant]
     Active Substance: ACETAMINOPHEN
     Indication: Premedication
     Dosage: 650 MILLIGRAM, SINGLE
     Route: 048
     Dates: start: 20101025, end: 20101025
  40. ACETAMINOPHEN [Concomitant]
     Active Substance: ACETAMINOPHEN
     Dosage: 650 MILLIGRAM, SINGLE
     Route: 048
     Dates: start: 20101101, end: 20101101
  41. ACETAMINOPHEN [Concomitant]
     Active Substance: ACETAMINOPHEN
     Dosage: 650 MILLIGRAM, SINGLE
     Route: 048
     Dates: start: 20101108, end: 20101108
  42. ACETAMINOPHEN [Concomitant]
     Active Substance: ACETAMINOPHEN
     Dosage: 650 MILLIGRAM, SINGLE
     Route: 048
     Dates: start: 20101115, end: 20101115
  43. ACETAMINOPHEN [Concomitant]
     Active Substance: ACETAMINOPHEN
     Dosage: 650 MILLIGRAM, SINGLE
     Route: 048
     Dates: start: 20101122, end: 20101122

REACTIONS (5)
  - Dyspepsia [Recovered/Resolved]
  - Chest pain [Recovered/Resolved]
  - Night sweats [Unknown]
  - Hunger [Unknown]
  - Off label use [Unknown]

NARRATIVE: CASE EVENT DATE: 20100101
